FAERS Safety Report 25945887 (Version 1)
Quarter: 2025Q4

REPORT INFORMATION
  Report Type: Spontaneous
  Country: US (occurrence: US)
  Receive Date: 20251021
  Receipt Date: 20251021
  Transmission Date: 20260119
  Serious: Yes (Hospitalization)
  Sender: BRISTOL-MYERS SQUIBB COMPANY
  Company Number: US-BRISTOL-MYERS SQUIBB COMPANY-2025-141614

PATIENT
  Age: 40 Year
  Sex: Male

DRUGS (8)
  1. ELIQUIS [Suspect]
     Active Substance: APIXABAN
     Indication: Cardiovascular disorder
  2. ELIQUIS [Suspect]
     Active Substance: APIXABAN
     Dates: start: 20250803
  3. KORLYM [Suspect]
     Active Substance: MIFEPRISTONE
     Indication: Cushing^s syndrome
     Dosage: DAILY. THERAPY END DATE WAS REPORTED AN UNKNOWN DATE IN 2025
     Dates: start: 20250803
  4. KORLYM [Suspect]
     Active Substance: MIFEPRISTONE
     Dosage: DAILY. THERAPY START DATE WAS REPORTED AN UNKNOWN DATE IN 2025
     Dates: start: 2025
  5. ATORVASTATIN [Concomitant]
     Active Substance: ATORVASTATIN
     Indication: Product used for unknown indication
  6. METOPROLOL [Concomitant]
     Active Substance: METOPROLOL
     Indication: Product used for unknown indication
  7. CLONAZEPAM [Concomitant]
     Active Substance: CLONAZEPAM
     Indication: Product used for unknown indication
  8. HYDROCODONE BITARTRATE AND ACETAMINOPHEN [Concomitant]
     Active Substance: ACETAMINOPHEN\HYDROCODONE BITARTRATE
     Indication: Product used for unknown indication

REACTIONS (7)
  - Coagulopathy [Unknown]
  - Chest pain [Not Recovered/Not Resolved]
  - Arthralgia [Unknown]
  - Heart rate increased [Unknown]
  - Hyperhidrosis [Unknown]
  - Pain in extremity [Unknown]
  - Off label use [Unknown]

NARRATIVE: CASE EVENT DATE: 20250928
